FAERS Safety Report 6946770-X (Version None)
Quarter: 2010Q3

REPORT INFORMATION
  Report Type: 
  Country: None (occurrence: None)
  Receive Date: 20100827
  Receipt Date: 20090813
  Transmission Date: 20110219
  Serious: No
  Sender: FDA-Public Use
  Company Number: US-ABBOTT-09P-163-0591762-00

PATIENT
  Sex: Male
  Weight: 92.616 kg

DRUGS (4)
  1. NIASPAN [Suspect]
     Indication: HIGH DENSITY LIPOPROTEIN DECREASED
     Route: 048
     Dates: start: 20081201
  2. NIASPAN [Suspect]
     Route: 048
  3. NIASPAN [Suspect]
     Route: 048
     Dates: end: 20090701
  4. NIASPAN [Suspect]
     Route: 048

REACTIONS (6)
  - BLOOD GLUCOSE INCREASED [None]
  - DRUG DOSE OMISSION [None]
  - ERYTHEMA [None]
  - HEART RATE INCREASED [None]
  - HIGH DENSITY LIPOPROTEIN ABNORMAL [None]
  - PARAESTHESIA [None]
